FAERS Safety Report 5486622-8 (Version None)
Quarter: 2007Q3

REPORT INFORMATION
  Report Type: 
  Country: None (occurrence: None)
  Receive Date: 20070925
  Receipt Date: 20070822
  Transmission Date: 20080115
  Serious: No
  Sender: FDA-Public Use
  Company Number: 2007US000142

PATIENT
  Sex: Female

DRUGS (1)
  1. VESICARE [Suspect]
     Indication: INCONTINENCE
     Dosage: 2.5 MG, /D, ORAL
     Route: 048

REACTIONS (2)
  - CONSTIPATION [None]
  - WRONG TECHNIQUE IN DRUG USAGE PROCESS [None]
